FAERS Safety Report 5050636-2 (Version None)
Quarter: 2006Q3

REPORT INFORMATION
  Report Type: 
  Country: None (occurrence: None)
  Receive Date: 20060713
  Receipt Date: 20060703
  Transmission Date: 20061208
  Serious: Yes (Hospitalization)
  Sender: FDA-Public Use
  Company Number: FR-SANOFI-SYNTHELABO-A02200601733

PATIENT
  Age: 63 Year
  Sex: Male

DRUGS (3)
  1. TAHOR [Concomitant]
     Indication: DYSLIPIDAEMIA
     Route: 048
  2. PLAVIX [Suspect]
     Indication: PERIPHERAL ARTERIAL OCCLUSIVE DISEASE
     Dosage: UNK
     Route: 048
     Dates: end: 20060530
  3. RAMIPRIL [Concomitant]
     Indication: DRUG USE FOR UNKNOWN INDICATION
     Dosage: UNK
     Route: 048
     Dates: end: 20060530

REACTIONS (6)
  - ANAL FISSURE [None]
  - GASTROINTESTINAL ANGIODYSPLASIA HAEMORRHAGIC [None]
  - HAEMORRHOIDS [None]
  - HEART RATE INCREASED [None]
  - MELAENA [None]
  - RECTAL HAEMORRHAGE [None]
